FAERS Safety Report 5968891-0 (Version None)
Quarter: 2008Q4

REPORT INFORMATION
  Report Type: 
  Country: None (occurrence: None)
  Receive Date: 20081126
  Receipt Date: 20081125
  Transmission Date: 20090506
  Serious: Yes (Hospitalization)
  Sender: FDA-Public Use
  Company Number: PL-BRISTOL-MYERS SQUIBB COMPANY-14413231

PATIENT
  Age: 2 Week
  Sex: Female

DRUGS (2)
  1. AMIKACINA [Suspect]
  2. CEFUROXIME [Suspect]

REACTIONS (1)
  - SKIN LESION [None]
